FAERS Safety Report 12435619 (Version 1)
Quarter: 2016Q2

REPORT INFORMATION
  Report Type: Spontaneous
  Country: US (occurrence: US)
  Receive Date: 20160603
  Receipt Date: 20160603
  Transmission Date: 20160815
  Serious: Yes (Hospitalization)
  Sender: FDA-Public Use
  Company Number: US-ROCHE-1639446

PATIENT
  Age: 64 Year
  Sex: Female

DRUGS (8)
  1. FASLODEX [Concomitant]
     Active Substance: FULVESTRANT
     Indication: BREAST CANCER
     Dosage: SPRING OF 2012
     Route: 065
     Dates: start: 2012
  2. ABRAXANE [Concomitant]
     Active Substance: PACLITAXEL
     Indication: BREAST CANCER
  3. AFINITOR [Concomitant]
     Active Substance: EVEROLIMUS
     Indication: BREAST CANCER
     Dosage: SUMMER OF 2015
     Route: 065
  4. TAXOTERE [Concomitant]
     Active Substance: DOCETAXEL
     Indication: BREAST CANCER
     Route: 065
     Dates: start: 201302, end: 201308
  5. IBRANCE [Suspect]
     Active Substance: PALBOCICLIB
     Indication: BREAST CANCER
     Dosage: DAILY FOR 21  DAYS AND 7 DAYS OFF
     Route: 048
  6. XELODA [Suspect]
     Active Substance: CAPECITABINE
     Indication: BREAST CANCER
     Dosage: SPRING OF 2012
     Route: 065
  7. AROMASIN [Suspect]
     Active Substance: EXEMESTANE
     Indication: BREAST CANCER
     Route: 065
     Dates: start: 201505
  8. TAMOXIFEN [Concomitant]
     Active Substance: TAMOXIFEN
     Indication: BREAST CANCER
     Route: 065
     Dates: start: 201308

REACTIONS (2)
  - Bacteraemia [Unknown]
  - Pneumonia [Unknown]

NARRATIVE: CASE EVENT DATE: 20150710
